FAERS Safety Report 18122197 (Version 3)
Quarter: 2020Q3

REPORT INFORMATION
  Report Type: Spontaneous
  Country: US (occurrence: US)
  Receive Date: 20200807
  Receipt Date: 20200921
  Transmission Date: 20201103
  Serious: No
  Sender: FDA-Public Use
  Company Number: US-GLAXOSMITHKLINE-US2020AMR146047

PATIENT
  Sex: Female

DRUGS (2)
  1. ZEJULA [Suspect]
     Active Substance: NIRAPARIB
     Indication: OVARIAN CANCER
     Dosage: 200 MG, QD
     Route: 048
     Dates: start: 20200713
  2. ZEJULA [Suspect]
     Active Substance: NIRAPARIB
     Dosage: 200 MG, QD
     Route: 048

REACTIONS (18)
  - Sleep disorder [Unknown]
  - Hypertension [Unknown]
  - Nausea [Unknown]
  - Blood creatinine abnormal [Unknown]
  - Depressed mood [Unknown]
  - Red blood cell count decreased [Unknown]
  - Feeling abnormal [Unknown]
  - White blood cell count decreased [Unknown]
  - Blood pressure fluctuation [Unknown]
  - Anaemia [Unknown]
  - Creatinine urine abnormal [Unknown]
  - Insomnia [Unknown]
  - Dyspepsia [Unknown]
  - Headache [Unknown]
  - Carbohydrate antigen 125 increased [Unknown]
  - Decreased appetite [Unknown]
  - Renal disorder [Unknown]
  - Illness [Unknown]
